FAERS Safety Report 15376086 (Version 1)
Quarter: 2018Q3

REPORT INFORMATION
  Report Type: Spontaneous
  Country: US (occurrence: US)
  Receive Date: 20180912
  Receipt Date: 20180912
  Transmission Date: 20181010
  Serious: Yes (Life-Threatening, Hospitalization, Other)
  Sender: FDA-Public Use
  Company Number: US-PRESTIGE BRANDS -2054884

PATIENT
  Age: 59 Year
  Sex: Female

DRUGS (1)
  1. GOODYS EXTRA STRENGTH [Suspect]
     Active Substance: ACETAMINOPHEN\ASPIRIN\CAFFEINE
     Indication: HEADACHE
     Route: 048

REACTIONS (7)
  - Gastric ulcer [Recovered/Resolved]
  - Nausea [Recovered/Resolved]
  - Diarrhoea [None]
  - Ulcer haemorrhage [Recovered/Resolved]
  - Vomiting [Recovered/Resolved]
  - Dehydration [Recovered/Resolved]
  - Incorrect drug administration duration [Recovered/Resolved]
